FAERS Safety Report 6824911-2 (Version None)
Quarter: 2010Q3

REPORT INFORMATION
  Report Type: 
  Country: None (occurrence: None)
  Receive Date: 20100708
  Receipt Date: 20061213
  Transmission Date: 20110219
  Serious: No
  Sender: FDA-Public Use
  Company Number: US-PFIZER INC-2006154628

PATIENT
  Sex: Female
  Weight: 56.25 kg

DRUGS (5)
  1. CHANTIX [Suspect]
     Indication: SMOKING CESSATION THERAPY
     Dates: start: 20061205
  2. AMITIZA [Concomitant]
     Indication: IRRITABLE BOWEL SYNDROME
  3. SYNTHROID [Concomitant]
     Indication: THYROID DISORDER
  4. PREMARIN [Concomitant]
  5. AMBIEN [Concomitant]

REACTIONS (6)
  - ABDOMINAL DISTENSION [None]
  - DECREASED APPETITE [None]
  - GASTRIC DISORDER [None]
  - GASTRITIS [None]
  - NAUSEA [None]
  - PAIN [None]
